FAERS Safety Report 16274372 (Version 1)
Quarter: 2019Q2

REPORT INFORMATION
  Report Type: Spontaneous
  Country: PL (occurrence: PL)
  Receive Date: 20190504
  Receipt Date: 20190504
  Transmission Date: 20190711
  Serious: Yes (Other)
  Sender: FDA-Public Use
  Company Number: PL-TEVA-526743ISR

PATIENT
  Age: 62 Year
  Sex: Male
  Weight: 76.5 kg

DRUGS (2)
  1. CISPLATIN TEVA [Suspect]
     Active Substance: CISPLATIN
     Indication: LUNG NEOPLASM MALIGNANT
     Dosage: 49.54 MILLIGRAM DAILY;
     Route: 042
     Dates: start: 20141113, end: 20141115
  2. NAVIREL [Suspect]
     Active Substance: VINORELBINE TARTRATE
     Indication: LUNG NEOPLASM MALIGNANT
     Dosage: 55.51 MILLIGRAM DAILY;
     Route: 042
     Dates: start: 20141113, end: 20141120

REACTIONS (1)
  - Granulocytopenia [Unknown]

NARRATIVE: CASE EVENT DATE: 20141202
